FAERS Safety Report 19899389 (Version 4)
Quarter: 2022Q2

REPORT INFORMATION
  Report Type: Other
  Country: US (occurrence: None)
  Receive Date: 20210929
  Receipt Date: 20220617
  Transmission Date: 20220721
  Serious: Yes (Disabling)
  Sender: FDA-Public Use
  Company Number: US-ROCHE-2921726

PATIENT
  Sex: Female
  Weight: 63.560 kg

DRUGS (1)
  1. RITUXAN [Suspect]
     Active Substance: RITUXIMAB
     Indication: Relapsing-remitting multiple sclerosis
     Dosage: //2015 TO //2015?/2016 TO UNKNOWN
     Route: 041
     Dates: start: 2014

REACTIONS (5)
  - Mobility decreased [Unknown]
  - Disability [Unknown]
  - Fall [Unknown]
  - Off label use [Unknown]
  - Maternal exposure during pregnancy [Unknown]

NARRATIVE: CASE EVENT DATE: 20150101
